FAERS Safety Report 7943227-4 (Version None)
Quarter: 2011Q4

REPORT INFORMATION
  Report Type: 
  Country: None (occurrence: None)
  Receive Date: 20111128
  Receipt Date: 20111121
  Transmission Date: 20120403
  Serious: Yes (Other)
  Sender: FDA-Public Use
  Company Number: PHEH2011US010051

PATIENT
  Sex: Male

DRUGS (1)
  1. TOBI [Suspect]
     Indication: RESPIRATORY DISORDER
     Dosage: 300 MG, BID 28 DAYS ON AND 28 DAYS OFF
     Dates: start: 20110817

REACTIONS (1)
  - RESPIRATORY TRACT INFECTION [None]
